FAERS Safety Report 10431470 (Version 1)
Quarter: 2014Q3

REPORT INFORMATION
  Report Type: Spontaneous
  Country: US (occurrence: None)
  Receive Date: 20140903
  Receipt Date: 20140903
  Transmission Date: 20150326
  Serious: Yes (Disabling, Other)
  Sender: FDA-Public Use
  Company Number: CC14-1269

PATIENT
  Age: 86 Year
  Sex: Male

DRUGS (1)
  1. METRONIDAZOLE. [Suspect]
     Active Substance: METRONIDAZOLE
     Dates: start: 201408

REACTIONS (3)
  - Blindness [None]
  - Pain [None]
  - Accidental exposure to product [None]

NARRATIVE: CASE EVENT DATE: 20140804
